FAERS Safety Report 17060928 (Version 1)
Quarter: 2019Q4

REPORT INFORMATION
  Report Type: Report from Study
  Country: US (occurrence: US)
  Receive Date: 20191121
  Receipt Date: 20191121
  Transmission Date: 20200122
  Serious: Yes (Other)
  Sender: FDA-Public Use
  Company Number: US-AMGEN-USACT2019190890

PATIENT
  Age: 58 Year
  Sex: Female
  Weight: 80.27 kg

DRUGS (3)
  1. TALIMOGENE LAHERPAREPVEC [Suspect]
     Active Substance: TALIMOGENE LAHERPAREPVEC
     Indication: LEIOMYOSARCOMA
     Dosage: 1 MILLILITER, Q2WK
     Route: 036
     Dates: start: 20190731
  2. YONDELIS [Suspect]
     Active Substance: TRABECTEDIN
     Indication: LEIOMYOSARCOMA
     Dosage: 1.8 MILLIGRAM, Q3WK
     Route: 042
     Dates: start: 20190717
  3. NIVOLUMAB [Suspect]
     Active Substance: NIVOLUMAB
     Indication: LEIOMYOSARCOMA
     Dosage: 240 MILLIGRAM, Q2WK
     Route: 042
     Dates: start: 20190724

REACTIONS (1)
  - Ejection fraction decreased [Not Recovered/Not Resolved]

NARRATIVE: CASE EVENT DATE: 20191114
